FAERS Safety Report 13641300 (Version 1)
Quarter: 2017Q2

REPORT INFORMATION
  Report Type: Spontaneous
  Country: US (occurrence: US)
  Receive Date: 20170609
  Receipt Date: 20170609
  Transmission Date: 20170830
  Serious: No
  Sender: FDA-Public Use
  Company Number: None

PATIENT
  Age: 34 Year
  Sex: Female
  Weight: 140.5 kg

DRUGS (10)
  1. VITAMIN D [Concomitant]
     Active Substance: CHOLECALCIFEROL
  2. TYLENOL [Concomitant]
     Active Substance: ACETAMINOPHEN
  3. METHOCARBAMOL. [Concomitant]
     Active Substance: METHOCARBAMOL
  4. CETIRIZINE [Suspect]
     Active Substance: CETIRIZINE HYDROCHLORIDE
     Indication: RHINITIS ALLERGIC
     Dates: start: 20170401, end: 20170517
  5. PROAIR INHALER [Concomitant]
     Active Substance: ALBUTEROL SULFATE
  6. FLUTICASONE NASAL SPRAY [Concomitant]
     Active Substance: FLUTICASONE
  7. DIAZEPAM. [Concomitant]
     Active Substance: DIAZEPAM
  8. RANITIDINE. [Concomitant]
     Active Substance: RANITIDINE
  9. PRAZOSIN. [Concomitant]
     Active Substance: PRAZOSIN
  10. METFORMIN [Concomitant]
     Active Substance: METFORMIN HYDROCHLORIDE

REACTIONS (6)
  - Dehydration [None]
  - Psoriatic arthropathy [None]
  - Oedema peripheral [None]
  - Thirst [None]
  - Pain in extremity [None]
  - Exostosis [None]

NARRATIVE: CASE EVENT DATE: 20170503
